FAERS Safety Report 12975222 (Version 1)
Quarter: 2016Q4

REPORT INFORMATION
  Report Type: Spontaneous
  Country: CO (occurrence: CO)
  Receive Date: 20161125
  Receipt Date: 20161125
  Transmission Date: 20170207
  Serious: Yes (Hospitalization, Other)
  Sender: FDA-Public Use
  Company Number: CO-CLINIGEN GROUP PLC/ CLINIGEN HEALTHCARE LTD-E2B_00000077

PATIENT
  Age: 53 Year
  Sex: Male

DRUGS (7)
  1. RADIOTHERAPY [Concomitant]
     Active Substance: RADIATION THERAPY
     Dates: start: 20110608
  2. ALPRAZOLAM. [Concomitant]
     Active Substance: ALPRAZOLAM
  3. PREDNISOLONE. [Concomitant]
     Active Substance: PREDNISOLONE
  4. ETHYOL [Suspect]
     Active Substance: AMIFOSTINE
     Indication: PROPHYLAXIS
     Route: 058
     Dates: start: 20110608
  5. OMEPRAZOLE. [Concomitant]
     Active Substance: OMEPRAZOLE
  6. CELECOXIB. [Concomitant]
     Active Substance: CELECOXIB
  7. LEVOTHYROXINE. [Concomitant]
     Active Substance: LEVOTHYROXINE

REACTIONS (7)
  - Hypotension [Recovered/Resolved]
  - Pyrexia [Recovered/Resolved]
  - Hypothermia [Recovered/Resolved]
  - Anxiety [Recovered/Resolved]
  - Leukocytosis [Recovered/Resolved]
  - Rash [Recovered/Resolved]
  - Anaphylactic shock [Recovered/Resolved]

NARRATIVE: CASE EVENT DATE: 20110628
